FAERS Safety Report 4389756-4 (Version None)
Quarter: 2004Q2

REPORT INFORMATION
  Report Type: 
  Country: None (occurrence: None)
  Receive Date: 20040630
  Receipt Date: 20040614
  Transmission Date: 20050107
  Serious: Yes (Death)
  Sender: FDA-Public Use
  Company Number: 04H-062-0263949-00

PATIENT
  Age: 65 Year
  Sex: Female

DRUGS (3)
  1. HEPARIN SODIUM [Suspect]
     Indication: ANTICOAGULANT THERAPY
     Dosage: 1200 IU/HOUR, INTRAVENOUS
     Route: 042
  2. ENOXAPARIN SODIUM [Suspect]
  3. ACTIVASE [Concomitant]

REACTIONS (3)
  - HEPARIN-INDUCED THROMBOCYTOPENIA [None]
  - MULTI-ORGAN FAILURE [None]
  - THROMBOSIS [None]
